FAERS Safety Report 9632340 (Version 1)
Quarter: 2013Q4

REPORT INFORMATION
  Report Type: Spontaneous
  Country: US (occurrence: US)
  Receive Date: 20131018
  Receipt Date: 20131018
  Transmission Date: 20140711
  Serious: Yes (Hospitalization, Other)
  Sender: FDA-Public Use
  Company Number: US-PFIZER INC-2013297240

PATIENT
  Age: 58 Year
  Sex: Male

DRUGS (3)
  1. FLUOROURACIL [Suspect]
     Indication: SQUAMOUS CELL CARCINOMA OF THE TONGUE
     Dosage: UNK
  2. CISPLATIN [Concomitant]
     Indication: SQUAMOUS CELL CARCINOMA OF THE TONGUE
     Dosage: UNK
  3. DOCETAXEL [Concomitant]
     Indication: SQUAMOUS CELL CARCINOMA OF THE TONGUE
     Dosage: UNK

REACTIONS (9)
  - Ventricular fibrillation [Recovered/Resolved]
  - Cardiac arrest [Recovered/Resolved]
  - Cardiotoxicity [Recovered/Resolved]
  - Electrocardiogram ST segment elevation [Recovered/Resolved]
  - Myocarditis [Recovered/Resolved]
  - Atrial fibrillation [Recovered/Resolved]
  - Sinus bradycardia [Recovered/Resolved]
  - Left ventricular hypertrophy [Recovered/Resolved]
  - Angina pectoris [Recovered/Resolved]
